FAERS Safety Report 11064715 (Version 1)
Quarter: 2015Q2

REPORT INFORMATION
  Report Type: Report from Study
  Country: AR (occurrence: AR)
  Receive Date: 20150424
  Receipt Date: 20150424
  Transmission Date: 20150821
  Serious: Yes (Other)
  Sender: FDA-Public Use
  Company Number: PHHY2014AR006907

PATIENT
  Sex: Male

DRUGS (2)
  1. DIOVAN [Suspect]
     Active Substance: VALSARTAN
     Indication: CARDIAC DISORDER
     Dosage: 320 OT, UNK
     Route: 065
  2. LUCENTIS [Suspect]
     Active Substance: RANIBIZUMAB
     Indication: VISUAL IMPAIRMENT
     Route: 031
     Dates: start: 2010

REACTIONS (10)
  - Ocular hyperaemia [Unknown]
  - Visual acuity reduced [Unknown]
  - Visual impairment [Unknown]
  - Blindness [Unknown]
  - Cataract [Unknown]
  - Vision blurred [Not Recovered/Not Resolved]
  - Hearing impaired [Unknown]
  - Maculopathy [Unknown]
  - Drug ineffective [Unknown]
  - Cerumen impaction [Unknown]

NARRATIVE: CASE EVENT DATE: 2012
